FAERS Safety Report 15312107 (Version 1)
Quarter: 2018Q3

REPORT INFORMATION
  Report Type: Other
  Country: MT (occurrence: MT)
  Receive Date: 20180823
  Receipt Date: 20180823
  Transmission Date: 20181010
  Serious: Yes (Death, Life-Threatening, Hospitalization, Disabling, Other)
  Sender: FDA-Public Use
  Company Number: MT-APOTEX-2018AP019199

PATIENT
  Sex: Female

DRUGS (2)
  1. LORANS [Concomitant]
     Active Substance: LORAZEPAM
     Indication: PRODUCT USED FOR UNKNOWN INDICATION
     Dosage: 20 MG, UNK
     Route: 065
     Dates: start: 20180201, end: 20180723
  2. PAROXETINE. [Suspect]
     Active Substance: PAROXETINE
     Dosage: 20 MG, UNK
     Route: 065
     Dates: start: 20180201, end: 20180723

REACTIONS (3)
  - Lethargy [Recovering/Resolving]
  - Fatigue [Fatal]
  - Headache [Unknown]
